FAERS Safety Report 7577799-9 (Version None)
Quarter: 2011Q2

REPORT INFORMATION
  Report Type: 
  Country: None (occurrence: None)
  Receive Date: 20110628
  Receipt Date: 20110614
  Transmission Date: 20111010
  Serious: Yes (Hospitalization)
  Sender: FDA-Public Use
  Company Number: PHHY2011CA53755

PATIENT

DRUGS (1)
  1. ALISKIREN [Suspect]

REACTIONS (4)
  - MAJOR DEPRESSION [None]
  - WEIGHT DECREASED [None]
  - HYPOTENSION [None]
  - EATING DISORDER [None]
